FAERS Safety Report 9116599 (Version 1)
Quarter: 2013Q1

REPORT INFORMATION
  Report Type: Report from Study
  Country: CA (occurrence: CA)
  Receive Date: 20130225
  Receipt Date: 20130225
  Transmission Date: 20140127
  Serious: Yes (Hospitalization)
  Sender: FDA-Public Use
  Company Number: CA-JNJFOC-20130212686

PATIENT
  Age: 42 Year
  Sex: Female
  Weight: 55.6 kg

DRUGS (4)
  1. REMICADE [Suspect]
     Indication: CROHN^S DISEASE
     Dosage: 50 INFUSION
     Route: 042
  2. AZATHIOPRINE [Concomitant]
     Route: 065
  3. CIPRO [Concomitant]
     Route: 065
  4. NUVARING [Concomitant]
     Route: 065

REACTIONS (1)
  - Gastrointestinal obstruction [Recovered/Resolved]
